FAERS Safety Report 25890606 (Version 1)
Quarter: 2025Q4

REPORT INFORMATION
  Report Type: Spontaneous
  Country: US (occurrence: None)
  Receive Date: 20251006
  Receipt Date: 20251006
  Transmission Date: 20260117
  Serious: Yes (Life-Threatening)
  Sender: FDA-CTU
  Company Number: None

PATIENT
  Age: 40 Year
  Sex: Female
  Weight: 67.5 kg

DRUGS (1)
  1. CATAPRES [Suspect]
     Active Substance: CLONIDINE HYDROCHLORIDE
     Indication: Nightmare
     Dates: start: 20100515, end: 20100515

REACTIONS (8)
  - Swollen tongue [None]
  - Pharyngeal swelling [None]
  - Swelling face [None]
  - Urticaria [None]
  - Pruritus [None]
  - Dyspnoea [None]
  - Agitation [None]
  - Hypertension [None]

NARRATIVE: CASE EVENT DATE: 20100515
